FAERS Safety Report 9672025 (Version 1)
Quarter: 2013Q4

REPORT INFORMATION
  Report Type: Spontaneous
  Country: JP (occurrence: JP)
  Receive Date: 20131106
  Receipt Date: 20131106
  Transmission Date: 20140711
  Serious: Yes (Other)
  Sender: FDA-Public Use
  Company Number: JP-GLAXOSMITHKLINE-B0904357A

PATIENT
  Age: 31 Year
  Sex: Female

DRUGS (2)
  1. VOTRIENT 200MG [Suspect]
     Indication: EXTRA-OSSEOUS EWING^S SARCOMA
     Dosage: 800MG PER DAY
     Route: 048
     Dates: start: 20130511, end: 201307
  2. VOTRIENT 200MG [Suspect]
     Indication: EXTRA-OSSEOUS EWING^S SARCOMA
     Route: 048

REACTIONS (2)
  - Pneumothorax [Recovering/Resolving]
  - Malaise [Recovering/Resolving]
